FAERS Safety Report 17437806 (Version 2)
Quarter: 2021Q2

REPORT INFORMATION
  Report Type: Report from Study
  Country: None (occurrence: CA)
  Receive Date: 20200219
  Receipt Date: 20210603
  Transmission Date: 20210716
  Serious: Yes (Other)
  Sender: FDA-Public Use
  Company Number: CA-ABBVIE-20K-028-3283841-00

PATIENT
  Sex: Male

DRUGS (1)
  1. HUMIRA [Suspect]
     Active Substance: ADALIMUMAB
     Indication: CROHN^S DISEASE
     Route: 058
     Dates: start: 20090608

REACTIONS (10)
  - Large intestinal stenosis [Not Recovered/Not Resolved]
  - Scrotal abscess [Not Recovered/Not Resolved]
  - Inflammation [Unknown]
  - Sinus disorder [Unknown]
  - Gastrointestinal disorder [Not Recovered/Not Resolved]
  - Subcutaneous abscess [Not Recovered/Not Resolved]
  - Intestinal dilatation [Unknown]
  - Intestinal obstruction [Not Recovered/Not Resolved]
  - Gastrointestinal scarring [Not Recovered/Not Resolved]
  - Abdominal abscess [Unknown]

NARRATIVE: CASE EVENT DATE: 2012
